FAERS Safety Report 9096679 (Version 1)
Quarter: 2013Q1

REPORT INFORMATION
  Report Type: Spontaneous
  Country: AT (occurrence: AT)
  Receive Date: 20130211
  Receipt Date: 20130211
  Transmission Date: 20140127
  Serious: Yes (Hospitalization)
  Sender: FDA-Public Use
  Company Number: AT-MILLENNIUM PHARMACEUTICALS, INC.-2013-00774

PATIENT
  Sex: 0

DRUGS (10)
  1. VELCADE [Suspect]
     Indication: PLASMA CELL MYELOMA
     Dosage: 1.3 MG/M2, CYCLIC
     Route: 058
     Dates: start: 20121207, end: 20130111
  2. DEXAMETHASONE [Suspect]
     Indication: PLASMA CELL MYELOMA
     Dosage: 20 MG, UNK
     Route: 048
     Dates: start: 20121207
  3. FERRETAB                           /00023505/ [Concomitant]
  4. VALACICLOVIR [Concomitant]
     Dosage: UNK
     Dates: start: 20130115
  5. MARCOUMAR [Concomitant]
  6. THYREX [Concomitant]
  7. CONCOR [Concomitant]
  8. CANDESARTAN [Concomitant]
  9. ALLOPURINOL [Concomitant]
  10. PANTOPRAZOLE [Suspect]
     Dosage: 20 MG, UNK

REACTIONS (4)
  - Cardiac fibrillation [Recovering/Resolving]
  - Dyspnoea [Not Recovered/Not Resolved]
  - Hypotonia [Not Recovered/Not Resolved]
  - Dizziness [Not Recovered/Not Resolved]
